FAERS Safety Report 4669088-7 (Version None)
Quarter: 2005Q2

REPORT INFORMATION
  Report Type: 
  Country: None (occurrence: None)
  Receive Date: 20050519
  Receipt Date: 20050502
  Transmission Date: 20051028
  Serious: Yes (Hospitalization)
  Sender: FDA-Public Use
  Company Number: 2004208004SE

PATIENT
  Age: 75 Year
  Sex: Male

DRUGS (12)
  1. CLINDAMYCIN HCL [Suspect]
     Indication: WOUND INFECTION
     Dosage: 1.8 GRAM (DAILY) INTRAMUSCULAR
     Route: 030
     Dates: start: 20031209, end: 20031213
  2. PROPAVAN                          (PROPIOMAZINE MALEATE) [Concomitant]
  3. ALLOPURINOL [Concomitant]
  4. FUROSEMIDE [Concomitant]
  5. TENORMIN [Concomitant]
  6. FLUNITRAZEPAM [Concomitant]
  7. RENITC                (ENALAPRIL MALEATE) [Concomitant]
  8. EPOETIN ALFA) [Concomitant]
  9. SODIUM BICARBONATE [Concomitant]
  10. CITODON                    (CODEINE PHOSPHATE, PARACETAMOL) [Concomitant]
  11. ALVEDON           (PARACETAMOL) [Concomitant]
  12. LANSOPRAZOLE [Concomitant]

REACTIONS (9)
  - BLOOD POTASSIUM INCREASED [None]
  - DEHYDRATION [None]
  - DIALYSIS [None]
  - EXANTHEM [None]
  - FATIGUE [None]
  - RASH SCALY [None]
  - RENAL ATROPHY [None]
  - RENAL IMPAIRMENT [None]
  - SKIN EXFOLIATION [None]
